FAERS Safety Report 5494466-6 (Version None)
Quarter: 2007Q4

REPORT INFORMATION
  Report Type: 
  Country: None (occurrence: None)
  Receive Date: 20071022
  Receipt Date: 20071022
  Transmission Date: 20080405
  Serious: No
  Sender: FDA-Public Use
  Company Number: None

PATIENT
  Age: 3 Year
  Sex: Female
  Weight: 19.0511 kg

DRUGS (6)
  1. AZITHROMYCIN [Suspect]
     Indication: PULMONARY CONGESTION
     Dosage: 1 TSP FIRST DATE PO
     Route: 048
     Dates: start: 20071018, end: 20071022
  2. AZITHROMYCIN [Suspect]
     Dosage: 1/2 TSP 4 DAYS PO
     Route: 048
  3. SINGULAIR [Concomitant]
  4. ALBUTEROL [Concomitant]
  5. PULMICORT INHALATION [Concomitant]
  6. M.V.I. [Concomitant]

REACTIONS (3)
  - DYSGEUSIA [None]
  - PHARMACEUTICAL PRODUCT COMPLAINT [None]
  - TREMOR [None]
